FAERS Safety Report 7213572-9 (Version None)
Quarter: 2010Q4

REPORT INFORMATION
  Report Type: 
  Country: None (occurrence: None)
  Receive Date: 20101229
  Receipt Date: 20101216
  Transmission Date: 20110411
  Serious: Yes (Other)
  Sender: FDA-Public Use
  Company Number: JPI-P-013293

PATIENT
  Age: 37 Year
  Sex: Female
  Weight: 125.1928 kg

DRUGS (5)
  1. XYREM [Suspect]
     Indication: NARCOLEPSY
     Dosage: SEE IMAGE
     Route: 048
     Dates: start: 20100101, end: 20100101
  2. XYREM [Suspect]
     Indication: NARCOLEPSY
     Dosage: SEE IMAGE
     Route: 048
     Dates: start: 20100302, end: 20100101
  3. XYREM [Suspect]
     Indication: NARCOLEPSY
     Dosage: SEE IMAGE
     Route: 048
     Dates: start: 20100101
  4. BUPROPION HCL [Concomitant]
  5. DEXTROAMPHETAMINE [Concomitant]

REACTIONS (12)
  - BACK INJURY [None]
  - BACK PAIN [None]
  - DECREASED APPETITE [None]
  - DIZZINESS [None]
  - JOINT INJURY [None]
  - MENOMETRORRHAGIA [None]
  - NAUSEA [None]
  - NECK INJURY [None]
  - NECK PAIN [None]
  - ROAD TRAFFIC ACCIDENT [None]
  - THYROID NEOPLASM [None]
  - WEIGHT DECREASED [None]
